FAERS Safety Report 23669507 (Version 1)
Quarter: 2024Q1

REPORT INFORMATION
  Report Type: Spontaneous
  Country: US (occurrence: None)
  Receive Date: 20240325
  Receipt Date: 20240325
  Transmission Date: 20240410
  Serious: Yes (Hospitalization)
  Sender: FDA-Public Use
  Company Number: None

PATIENT
  Age: 30 Month
  Sex: Female

DRUGS (1)
  1. NYVEPRIA [Suspect]
     Active Substance: PEGFILGRASTIM-APGF
     Dosage: OTHER FREQUENCY : EVERY21DAYS;?
     Route: 042
     Dates: start: 202403

REACTIONS (4)
  - Fall [None]
  - Head injury [None]
  - Concussion [None]
  - Anaemia [None]

NARRATIVE: CASE EVENT DATE: 20240301
